FAERS Safety Report 5970278-1 (Version None)
Quarter: 2008Q4

REPORT INFORMATION
  Report Type: 
  Country: None (occurrence: None)
  Receive Date: 20081126
  Receipt Date: 20081118
  Transmission Date: 20090506
  Serious: Yes (Other)
  Sender: FDA-Public Use
  Company Number: CA-PFIZER INC-2008098290

PATIENT
  Sex: Female

DRUGS (2)
  1. NEURONTIN [Suspect]
     Indication: HERPES ZOSTER
     Route: 048
  2. LYRICA [Suspect]
     Indication: HERPES ZOSTER
     Route: 048

REACTIONS (4)
  - DISTURBANCE IN ATTENTION [None]
  - DRUG INEFFECTIVE [None]
  - HYPOREFLEXIA [None]
  - ROAD TRAFFIC ACCIDENT [None]
